FAERS Safety Report 9299384 (Version 2)
Quarter: 2013Q4

REPORT INFORMATION
  Report Type: Spontaneous
  Country: US (occurrence: US)
  Receive Date: 20130520
  Receipt Date: 20131108
  Transmission Date: 20140711
  Serious: Yes (Hospitalization)
  Sender: FDA-Public Use
  Company Number: US-B.I. PHARMACEUTICALS,INC./RIDGEFIELD-2013-BI-13783BP

PATIENT
  Sex: Female
  Weight: 79.38 kg

DRUGS (18)
  1. PRADAXA [Suspect]
     Indication: ANTICOAGULANT THERAPY
     Dosage: 150 MG
     Route: 048
     Dates: start: 20110901, end: 201109
  2. PRADAXA [Suspect]
     Indication: ATRIAL FIBRILLATION
  3. FENOFIBRATE [Concomitant]
     Dosage: 160 MG
     Route: 048
  4. LASIX [Concomitant]
     Dosage: 40 MG
     Dates: start: 1997
  5. ALLOPURINOL [Concomitant]
     Dosage: 100 MG
     Dates: start: 1997
  6. OMEPRAZOLE [Concomitant]
     Dosage: 20 MG
  7. MIRALAX [Concomitant]
     Dosage: 17 G
  8. LANTUS [Concomitant]
     Dosage: 15 U
     Route: 058
  9. HUMULIN [Concomitant]
     Dates: start: 1997
  10. SENOKOT [Concomitant]
  11. PRAVASTATIN [Concomitant]
     Dosage: 40 MG
     Dates: start: 1997
  12. VITAMIN B12 [Concomitant]
     Dosage: 1000 MCG
  13. TRAMADOL [Concomitant]
     Dates: start: 2010
  14. SANDIMMUNE [Concomitant]
     Dates: start: 1997
  15. PLAVIX [Concomitant]
     Dates: start: 1993
  16. CIPROFLOXACIN HCL [Concomitant]
  17. SENNA LAXATIVE [Concomitant]
  18. FLUCONAZOLE [Concomitant]

REACTIONS (2)
  - Gastrointestinal haemorrhage [Unknown]
  - Haemorrhagic anaemia [Unknown]
